FAERS Safety Report 24276113 (Version 3)
Quarter: 2024Q4

REPORT INFORMATION
  Report Type: Spontaneous
  Country: CZ (occurrence: CZ)
  Receive Date: 20240903
  Receipt Date: 20241115
  Transmission Date: 20250115
  Serious: Yes (Other)
  Sender: NOVARTIS
  Company Number: CZ-002147023-NVSC2024CZ176619

PATIENT
  Age: 40 Year
  Sex: Female

DRUGS (2)
  1. KESIMPTA [Suspect]
     Active Substance: OFATUMUMAB
     Indication: Multiple sclerosis
     Dosage: 20 MG, QMO
     Route: 058
     Dates: start: 202311, end: 202407
  2. Vigantol [Concomitant]
     Indication: Product used for unknown indication
     Dosage: UNK, QD (5 DROPS)
     Route: 065

REACTIONS (4)
  - Enterocolitis [Recovered/Resolved]
  - Crohn^s disease [Recovered/Resolved]
  - Diarrhoea [Recovered/Resolved]
  - Abdominal pain [Recovered/Resolved]

NARRATIVE: CASE EVENT DATE: 20240601
